FAERS Safety Report 14132912 (Version 9)
Quarter: 2019Q3

REPORT INFORMATION
  Report Type: Report from Study
  Country: FR (occurrence: FR)
  Receive Date: 20171027
  Receipt Date: 20190905
  Transmission Date: 20191004
  Serious: Yes (Death, Hospitalization, Other)
  Sender: FDA-Public Use
  Company Number: FR-ROCHE-2002057

PATIENT
  Age: 56 Year
  Sex: Male
  Weight: 96 kg

DRUGS (24)
  1. IDELALISIB [Suspect]
     Active Substance: IDELALISIB
     Indication: WALDENSTROM^S MACROGLOBULINAEMIA
     Route: 048
     Dates: start: 20170612, end: 20170903
  2. AMIDARONE [Concomitant]
     Active Substance: AMIODARONE
     Indication: PRODUCT USED FOR UNKNOWN INDICATION
     Dosage: 1/2 DF?0.5 DOSAGE FORM
     Route: 065
  3. DIFFU K [Concomitant]
     Active Substance: POTASSIUM CHLORIDE
     Route: 065
  4. IDELALISIB [Suspect]
     Active Substance: IDELALISIB
     Route: 048
     Dates: start: 20180130
  5. ETOPOSIDE. [Concomitant]
     Active Substance: ETOPOSIDE
     Route: 065
  6. ZELITREX [Concomitant]
     Active Substance: VALACYCLOVIR HYDROCHLORIDE
  7. RITUXIMAB. [Concomitant]
     Active Substance: RITUXIMAB
     Route: 042
     Dates: start: 20190108, end: 20190109
  8. RITUXIMAB. [Concomitant]
     Active Substance: RITUXIMAB
     Dosage: COMPLETED 6 COURSES OF RITUXIMAB
     Route: 042
     Dates: start: 201501, end: 201506
  9. OBINUTUZUMAB. [Suspect]
     Active Substance: OBINUTUZUMAB
     Route: 042
     Dates: start: 20170809, end: 20170809
  10. PENTACARINAT [Concomitant]
     Active Substance: PENTAMIDINE ISETHIONATE
  11. DEXAMETHASONE. [Concomitant]
     Active Substance: DEXAMETHASONE
     Dosage: IN JAN-JUN/2015, COMPLETED 6 COURSES OF DEXAMETHASONE
     Route: 065
  12. OBINUTUZUMAB. [Suspect]
     Active Substance: OBINUTUZUMAB
     Route: 042
     Dates: start: 20171004, end: 20171004
  13. OBINUTUZUMAB. [Suspect]
     Active Substance: OBINUTUZUMAB
     Route: 042
     Dates: start: 201712
  14. IDELALISIB [Suspect]
     Active Substance: IDELALISIB
     Route: 048
     Dates: start: 20171004, end: 20181227
  15. ESOMEPRAZOLE. [Concomitant]
     Active Substance: ESOMEPRAZOLE MAGNESIUM
     Indication: PRODUCT USED FOR UNKNOWN INDICATION
     Route: 065
  16. BISOPROLOL [Concomitant]
     Active Substance: BISOPROLOL
     Indication: PRODUCT USED FOR UNKNOWN INDICATION
     Route: 065
  17. FUROSEMIDE. [Concomitant]
     Active Substance: FUROSEMIDE
     Route: 042
  18. FILGRASTIM [Concomitant]
     Active Substance: FILGRASTIM
  19. BENDAMUSTINE [Concomitant]
     Active Substance: BENDAMUSTINE
     Route: 042
  20. CYCLOPHOSPHAMIDE. [Concomitant]
     Active Substance: CYCLOPHOSPHAMIDE
     Dosage: IN JAN-JUN/2015, COMPLETED 6 COURSES OF CYCLOPHOSPHAMIDE
     Route: 065
  21. OBINUTUZUMAB. [Suspect]
     Active Substance: OBINUTUZUMAB
     Indication: WALDENSTROM^S MACROGLOBULINAEMIA
     Route: 042
     Dates: start: 20170612, end: 20170612
  22. OBINUTUZUMAB. [Suspect]
     Active Substance: OBINUTUZUMAB
     Route: 042
     Dates: start: 201711
  23. LOVENOX [Concomitant]
     Active Substance: ENOXAPARIN SODIUM
     Route: 065
  24. BACTRIM [Concomitant]
     Active Substance: SULFAMETHOXAZOLE\TRIMETHOPRIM
     Indication: ANTIBIOTIC PROPHYLAXIS
     Route: 048
     Dates: start: 20180130

REACTIONS (6)
  - Pancytopenia [Unknown]
  - Pyrexia [Unknown]
  - Febrile bone marrow aplasia [Unknown]
  - Pneumonia [Recovered/Resolved]
  - Pyrexia [Recovered/Resolved]
  - C-reactive protein increased [Recovered/Resolved]

NARRATIVE: CASE EVENT DATE: 20170913
